FAERS Safety Report 20514511 (Version 2)
Quarter: 2022Q2

REPORT INFORMATION
  Report Type: Report from Study
  Country: US (occurrence: US)
  Receive Date: 20220224
  Receipt Date: 20220421
  Transmission Date: 20220721
  Serious: Yes (Hospitalization)
  Sender: FDA-Public Use
  Company Number: US-MIRM-000300

PATIENT
  Sex: Female

DRUGS (13)
  1. LIVMARLI [Suspect]
     Active Substance: MARALIXIBAT CHLORIDE
     Indication: Product used for unknown indication
     Route: 048
     Dates: start: 20211202
  2. 1687892 (GLOBALC3Sep19): Albumin Human [Concomitant]
  3. 3853300 (GLOBALC3Sep19): Aldactazide [Concomitant]
  4. 1262333 (GLOBALC3Sep19): Aspirin 81 [Concomitant]
  5. 1262928 (GLOBALC3Sep19): Calcitriol [Concomitant]
  6. 2356665 (GLOBALC3Sep19): Calcium Carbonate [Concomitant]
  7. 1782816 (GLOBALC3Sep19): Cholecalciferol [Concomitant]
  8. 1610854 (GLOBALC3Sep19): Clonidine HCl (Bulk) [Concomitant]
  9. 1263340 (GLOBALC3Sep19): Ferrous Sulfate [Concomitant]
  10. 1265193 (GLOBALC3Sep19): Furosemide [Concomitant]
  11. 2379594 (GLOBALC3Sep19): Multiple Vitamins [Concomitant]
  12. 49821 (GLOBALC3Sep19): TPN Electrolytes [Concomitant]
  13. 1328777 (GLOBALC3Sep19): Ursodiol+SyrSpend SF [Concomitant]

REACTIONS (3)
  - Renal impairment [Unknown]
  - Pruritus [Unknown]
  - Vascular device infection [Unknown]
